FAERS Safety Report 8969972 (Version 1)
Quarter: 2012Q4

REPORT INFORMATION
  Report Type: 
  Country: GB (occurrence: GB)
  Receive Date: 20121217
  Receipt Date: 20121217
  Transmission Date: 20130627
  Serious: Yes (Other)
  Sender: FDA-Public Use
  Company Number: GB-MERCK-1212GBR004412

PATIENT
  Age: 77 Year
  Sex: Male
  Weight: 73.2 kg

DRUGS (6)
  1. SIMVASTATIN [Suspect]
     Dosage: UNK
     Route: 048
     Dates: start: 20120821
  2. DILTIAZEM HYDROCHLORIDE [Interacting]
     Dosage: UNK
     Dates: start: 20120821
  3. ASPIRIN [Concomitant]
     Indication: PROPHYLAXIS
     Dosage: UNK
     Dates: start: 20120821
  4. ATORVASTATIN [Concomitant]
     Indication: PROPHYLAXIS
     Dosage: UNK
     Dates: start: 20121127
  5. FERROUS SULFATE [Concomitant]
     Dosage: UNK
     Dates: start: 20121023
  6. LISINOPRIL [Concomitant]
     Dosage: UNK
     Dates: start: 20120821, end: 20121016

REACTIONS (1)
  - Drug interaction [Recovered/Resolved]
